FAERS Safety Report 7632757-0 (Version None)
Quarter: 2011Q3

REPORT INFORMATION
  Report Type: 
  Country: None (occurrence: None)
  Receive Date: 20110725
  Receipt Date: 20101231
  Transmission Date: 20111222
  Serious: No
  Sender: FDA-Public Use
  Company Number: US-BRISTOL-MYERS SQUIBB COMPANY-15463417

PATIENT
  Age: 79 Year
  Sex: Female
  Weight: 54 kg

DRUGS (10)
  1. COUMADIN [Suspect]
     Indication: PROPHYLAXIS
     Dates: start: 20080401
  2. LASIX [Concomitant]
  3. VITAMIN D [Concomitant]
  4. PLAVIX [Concomitant]
  5. BLOOD PRESSURE MEDICATION [Concomitant]
  6. NEXIUM [Concomitant]
  7. PROCARDIA [Concomitant]
  8. METOPROLOL TARTRATE [Concomitant]
  9. POTASSIUM [Concomitant]
  10. ASCORBIC ACID [Concomitant]

REACTIONS (1)
  - GASTROOESOPHAGEAL REFLUX DISEASE [None]
